FAERS Safety Report 8904437 (Version 2)
Quarter: 2012Q4

REPORT INFORMATION
  Report Type: 
  Country: BG (occurrence: BG)
  Receive Date: 20121110
  Receipt Date: 20121128
  Transmission Date: 20130627
  Serious: Yes (Hospitalization)
  Sender: FDA-Public Use
  Company Number: BG-009507513-1211BGR000730

PATIENT
  Age: 58 Year
  Sex: Female

DRUGS (11)
  1. PEGINTRON [Suspect]
     Indication: HEPATITIS C
     Dosage: UNK
     Route: 058
     Dates: start: 201005, end: 201105
  2. PEGINTRON [Suspect]
     Dosage: 120 Microgram, qw
     Route: 058
     Dates: start: 20120720, end: 20121115
  3. REBETOL [Suspect]
     Indication: HEPATITIS C
     Dosage: UNK
     Route: 048
     Dates: start: 201005, end: 201105
  4. REBETOL [Suspect]
     Dosage: 1000 mg/day (2+0+3 capsules)
     Route: 048
     Dates: start: 20120720, end: 20121115
  5. REBETOL [Suspect]
     Dosage: 400 mg, bid
     Route: 048
     Dates: start: 20120920, end: 2012
  6. REBETOL [Suspect]
     Dosage: 600 mg, qd
     Route: 048
     Dates: start: 20121023, end: 20121024
  7. REBETOL [Suspect]
     Dosage: 400 mg, qd
     Route: 048
     Dates: start: 20121025
  8. BOCEPREVIR [Suspect]
     Indication: HEPATITIS C
     Dosage: 2400 mg /day (3x4 capsules)
     Route: 048
     Dates: start: 201208, end: 20121101
  9. URSOFALK [Concomitant]
     Dosage: 1 DF, tid
     Route: 048
  10. CARSIL [Concomitant]
     Indication: HEPATITIS C
     Dosage: 3x3 capsules, qm
     Route: 048
     Dates: start: 20120720
  11. CONCOR [Concomitant]
     Dosage: 5 mg, qd
     Route: 048

REACTIONS (8)
  - Leukopenia [Recovering/Resolving]
  - Anaemia [Recovering/Resolving]
  - Nephroptosis [Recovering/Resolving]
  - Pyrexia [Recovering/Resolving]
  - Weight decreased [Recovering/Resolving]
  - Decreased appetite [Recovering/Resolving]
  - Dry mouth [Recovering/Resolving]
  - Asthenia [Recovering/Resolving]
